FAERS Safety Report 20254254 (Version 6)
Quarter: 2022Q1

REPORT INFORMATION
  Report Type: Report from Study
  Country: US (occurrence: US)
  Receive Date: 20211230
  Receipt Date: 20220325
  Transmission Date: 20220423
  Serious: Yes (Death, Hospitalization)
  Sender: FDA-Public Use
  Company Number: US-HORIZON THERAPEUTICS-HZN-2021-009922

PATIENT

DRUGS (11)
  1. KRYSTEXXA [Suspect]
     Active Substance: PEGLOTICASE
     Indication: Gout
     Dosage: FIRST INFUSION
     Route: 042
     Dates: start: 20211220
  2. CELLCEPT [Concomitant]
     Active Substance: MYCOPHENOLATE MOFETIL
     Indication: Product used for unknown indication
     Dosage: 500 MG, BID (2 WEEKS PRIOR TO KRYSTEXXA INFUSION)
     Route: 065
  3. VERCAF [Concomitant]
  4. NIFEDIPINE [Concomitant]
     Active Substance: NIFEDIPINE
  5. IRBESARTAN [Concomitant]
     Active Substance: IRBESARTAN
  6. VITAMIN B12 [Concomitant]
     Active Substance: CYANOCOBALAMIN
  7. VITAMIN C [Concomitant]
     Active Substance: ASCORBIC ACID
  8. METOPROLOL [Concomitant]
     Active Substance: METOPROLOL
  9. COLCHICINE [Concomitant]
     Active Substance: COLCHICINE
  10. LASIX [Concomitant]
     Active Substance: FUROSEMIDE
  11. HYDRALAZINE [Concomitant]
     Active Substance: HYDRALAZINE HYDROCHLORIDE

REACTIONS (7)
  - Cardiac arrest [Fatal]
  - Acute kidney injury [Fatal]
  - Nausea [Fatal]
  - Vomiting [Fatal]
  - Diarrhoea [Fatal]
  - Hypotension [Not Recovered/Not Resolved]
  - Lethargy [Not Recovered/Not Resolved]

NARRATIVE: CASE EVENT DATE: 20211201
